FAERS Safety Report 20846959 (Version 1)
Quarter: 2022Q2

REPORT INFORMATION
  Report Type: Spontaneous
  Country: DE (occurrence: DE)
  Receive Date: 20220519
  Receipt Date: 20220519
  Transmission Date: 20220721
  Serious: Yes (Other)
  Sender: FDA-Public Use
  Company Number: DE-AUROBINDO-AUR-APL-2018-058430

PATIENT
  Age: 71 Year
  Sex: Male
  Weight: 87 kg

DRUGS (43)
  1. LEUCOVORIN [Suspect]
     Active Substance: LEUCOVORIN
     Indication: Product used for unknown indication
     Dosage: , WEEKLY (2X A WEEK)600 MILLIGRAM
     Route: 042
     Dates: start: 20160208, end: 20160208
  2. LEUCOVORIN [Suspect]
     Active Substance: LEUCOVORIN
     Dosage: UNK
     Route: 065
     Dates: start: 20160208, end: 20160711
  3. LEUCOVORIN [Suspect]
     Active Substance: LEUCOVORIN
     Dosage: 808 MILLIGRAM, WEEKLY (2X A WEEK)
     Route: 042
     Dates: start: 20160222, end: 20160222
  4. LEUCOVORIN [Suspect]
     Active Substance: LEUCOVORIN
     Dosage: 606 MILLIGRAM, WEEKLY (2X A WEEK)
     Route: 042
     Dates: start: 20160314, end: 20160314
  5. LEUCOVORIN [Suspect]
     Active Substance: LEUCOVORIN
     Dosage: , WEEKLY (2X A WEEK)606 MILLIGRAM
     Route: 042
     Dates: start: 20160330, end: 20160330
  6. LEUCOVORIN [Suspect]
     Active Substance: LEUCOVORIN
     Dosage: 600 MILLIGRAM,WEEKLY (2X A WEEK)
     Route: 042
     Dates: start: 20160411, end: 20160411
  7. LEUCOVORIN [Suspect]
     Active Substance: LEUCOVORIN
     Dosage: 600 MILLIGRAM, WEEKLY (2X A WEEK)
     Route: 042
     Dates: start: 20160425, end: 20160425
  8. LEUCOVORIN [Suspect]
     Active Substance: LEUCOVORIN
     Dosage: , WEEKLY (2X A WEEK)
     Route: 042
     Dates: start: 20160627, end: 20160627
  9. LEUCOVORIN [Suspect]
     Active Substance: LEUCOVORIN
     Dosage: 612 MILLIGRAM, WEEKLY (2X A WEEK)
     Route: 042
     Dates: start: 20160711, end: 20160711
  10. IRINOTECAN [Suspect]
     Active Substance: IRINOTECAN
     Indication: Colorectal cancer
     Dosage: 272 MILLIGRAM WEEKLY
     Route: 042
     Dates: start: 20160208, end: 20160208
  11. IRINOTECAN [Suspect]
     Active Substance: IRINOTECAN
     Dosage: 363 MILLIGRAM WEEKLY (2X A WEEK)
     Route: 042
     Dates: start: 20160222, end: 20160222
  12. IRINOTECAN [Suspect]
     Active Substance: IRINOTECAN
     Dosage: 272 MILLIGRAM WEEKLY (2X A WEEK)
     Route: 042
     Dates: start: 20160314, end: 20160314
  13. IRINOTECAN [Suspect]
     Active Substance: IRINOTECAN
     Dosage: 272 MILLIGRAM WEEKLY (2X A WEEK)
     Route: 042
     Dates: start: 20160330, end: 20160330
  14. IRINOTECAN [Suspect]
     Active Substance: IRINOTECAN
     Dosage: 270 MILLIGRAM WEEKLY (2X A WEEK)
     Route: 042
     Dates: start: 20160411, end: 20160411
  15. IRINOTECAN [Suspect]
     Active Substance: IRINOTECAN
     Dosage: 270 MILLIGRAM WEEKLY
     Route: 042
     Dates: start: 20160425, end: 20160425
  16. IRINOTECAN [Suspect]
     Active Substance: IRINOTECAN
     Dosage: 272 MILLIGRAM WEEKLY (2X A WEEK)
     Route: 042
     Dates: start: 20160613, end: 20160613
  17. IRINOTECAN [Suspect]
     Active Substance: IRINOTECAN
     Dosage: 275 MILLIGRAM WEEKLY (2X A WEEK)
     Route: 042
     Dates: start: 20160711, end: 20160711
  18. IRINOTECAN [Suspect]
     Active Substance: IRINOTECAN
     Dosage: 272 MILLIGRAM WEEKLY (2X A WEEK)
     Route: 042
     Dates: start: 20160627
  19. AVASTIN [Suspect]
     Active Substance: BEVACIZUMAB
     Indication: Colorectal cancer
     Dosage: 840 MILLIGRAM
     Route: 042
     Dates: start: 20160224
  20. AVASTIN [Suspect]
     Active Substance: BEVACIZUMAB
     Dosage: 420 MILLIGRAM, WEEKLY
     Dates: start: 20160224
  21. AVASTIN [Suspect]
     Active Substance: BEVACIZUMAB
     Dosage: 420 MILLIGRAM WEEKLY
     Route: 042
     Dates: start: 20160615, end: 20160615
  22. FLUOROURACIL [Suspect]
     Active Substance: FLUOROURACIL
     Indication: Colorectal cancer
     Dosage: BETWEEN 600 MG AND 808 MG
     Route: 040
     Dates: start: 20160208, end: 20160208
  23. FLUOROURACIL [Suspect]
     Active Substance: FLUOROURACIL
     Dosage: 808 MILLIGRAM WEEKLY (2X A WEEK)
     Route: 040
     Dates: start: 20160222, end: 20160222
  24. FLUOROURACIL [Suspect]
     Active Substance: FLUOROURACIL
     Dosage: 606 MILLIGRAM WEEKLY (2X A WEEK)
     Route: 040
     Dates: start: 20160314, end: 20160314
  25. FLUOROURACIL [Suspect]
     Active Substance: FLUOROURACIL
     Dosage: 606 MILLIGRAM WEEKLY
     Route: 040
     Dates: start: 20160330, end: 20160330
  26. FLUOROURACIL [Suspect]
     Active Substance: FLUOROURACIL
     Dosage: 600 MILLIGRAM WEEKLY
     Route: 040
     Dates: start: 20160411, end: 20160411
  27. FLUOROURACIL [Suspect]
     Active Substance: FLUOROURACIL
     Dosage: 606 MILLIGRAM WEEKLY (2X A WEEK)
     Route: 040
     Dates: start: 20160425, end: 20160425
  28. FLUOROURACIL [Suspect]
     Active Substance: FLUOROURACIL
     Dosage: 606 MILLIGRAM WEEKLY (2X A WEEK)
     Route: 041
     Dates: start: 20160430, end: 20160430
  29. FLUOROURACIL [Suspect]
     Active Substance: FLUOROURACIL
     Dosage: 600 MILLIGRAM WEEKLY (2X A WEEK)
     Route: 040
     Dates: start: 20160425, end: 20160425
  30. FLUOROURACIL [Suspect]
     Active Substance: FLUOROURACIL
     Dosage: 606 MILLIGRAM WEEKLY (2X A WEEK)
     Route: 040
     Dates: start: 20160613, end: 20160613
  31. FLUOROURACIL [Suspect]
     Active Substance: FLUOROURACIL
     Dosage: 606 MILLIGRAM WEEKLY (2X A WEEK)
     Route: 040
     Dates: start: 20160627, end: 20160627
  32. FLUOROURACIL [Suspect]
     Active Substance: FLUOROURACIL
     Dosage: 612 MILLIGRAM WEEKLY (2X A WEEK)
     Route: 040
     Dates: start: 20160711, end: 20160711
  33. ONIVYDE [Suspect]
     Active Substance: IRINOTECAN HYDROCHLORIDE
     Indication: Colorectal cancer
     Dosage: 272 MILLIGRAM
     Route: 042
     Dates: start: 20160208, end: 20160208
  34. ONIVYDE [Suspect]
     Active Substance: IRINOTECAN HYDROCHLORIDE
     Dosage: 363 MILLIGRAM
     Route: 042
     Dates: start: 20160222, end: 20160222
  35. ONIVYDE [Suspect]
     Active Substance: IRINOTECAN HYDROCHLORIDE
     Dosage: 272 MILLIGRAM
     Route: 042
     Dates: start: 20160314
  36. ONIVYDE [Suspect]
     Active Substance: IRINOTECAN HYDROCHLORIDE
     Dosage: 272 MILLIGRAM
     Route: 042
     Dates: start: 20160613
  37. ONIVYDE [Suspect]
     Active Substance: IRINOTECAN HYDROCHLORIDE
     Dosage: 275 MILLIGRAM
     Route: 042
     Dates: start: 20160711
  38. ONIVYDE [Suspect]
     Active Substance: IRINOTECAN HYDROCHLORIDE
     Dosage: 270 MILLIGRAM
     Route: 042
     Dates: start: 20160425
  39. ONIVYDE [Suspect]
     Active Substance: IRINOTECAN HYDROCHLORIDE
     Dosage: 270 MILLIGRAM
     Route: 042
     Dates: start: 20160411
  40. ONIVYDE [Suspect]
     Active Substance: IRINOTECAN HYDROCHLORIDE
     Dosage: 272 MILLIGRAM
     Route: 042
     Dates: start: 20160627
  41. OXALIPLATIN [Suspect]
     Active Substance: OXALIPLATIN
     Indication: Product used for unknown indication
     Dosage: 129 MILLIGRAM
     Route: 042
     Dates: start: 20160919, end: 20160919
  42. VALSARTAN [Concomitant]
     Active Substance: VALSARTAN
     Indication: Product used for unknown indication
     Dosage: UNK
     Route: 065
  43. VALSARTAN [Concomitant]
     Active Substance: VALSARTAN
     Indication: Product used for unknown indication
     Dosage: 80 MILLIGRAM
     Route: 048

REACTIONS (5)
  - Neutropenia [Recovered/Resolved]
  - Epistaxis [Recovered/Resolved]
  - Overdose [Unknown]
  - Off label use [Unknown]
  - Inappropriate schedule of product administration [Unknown]

NARRATIVE: CASE EVENT DATE: 20160307
